FAERS Safety Report 11880160 (Version 1)
Quarter: 2015Q4

REPORT INFORMATION
  Report Type: Spontaneous
  Country: US (occurrence: US)
  Receive Date: 20151230
  Receipt Date: 20151230
  Transmission Date: 20160305
  Serious: Yes (Other)
  Sender: FDA-Public Use
  Company Number: US-SA-2015SA220753

PATIENT
  Age: 82 Year
  Sex: Male

DRUGS (1)
  1. DRONEDARONE [Suspect]
     Active Substance: DRONEDARONE
     Route: 065
     Dates: start: 2011

REACTIONS (8)
  - Pulmonary toxicity [Recovered/Resolved]
  - Forced vital capacity decreased [Recovered/Resolved]
  - Total lung capacity decreased [Recovered/Resolved]
  - Dyspnoea [Recovered/Resolved]
  - Hypoxia [Recovered/Resolved]
  - Exercise tolerance decreased [Unknown]
  - Computerised tomogram abnormal [Recovered/Resolved]
  - Carbon monoxide diffusing capacity decreased [Recovered/Resolved]
